FAERS Safety Report 11690564 (Version 1)
Quarter: 2015Q4

REPORT INFORMATION
  Report Type: Spontaneous
  Country: US (occurrence: US)
  Receive Date: 20151102
  Receipt Date: 20151102
  Transmission Date: 20160304
  Serious: No
  Sender: FDA-Public Use
  Company Number: US-PFIZER INC-2015366378

PATIENT
  Age: 76 Year
  Sex: Male

DRUGS (3)
  1. ZITHROMAX [Suspect]
     Active Substance: AZITHROMYCIN DIHYDRATE
     Indication: NASOPHARYNGITIS
     Dosage: UNK UNK, 1X/DAY
  2. DESONIDE. [Concomitant]
     Active Substance: DESONIDE
     Dosage: UNK
  3. XTANDI [Suspect]
     Active Substance: ENZALUTAMIDE
     Indication: PROSTATE CANCER
     Dosage: 160 MG, 1X/DAY
     Dates: start: 20150705

REACTIONS (2)
  - Palpitations [Unknown]
  - Nightmare [Unknown]
